FAERS Safety Report 5366926-X (Version None)
Quarter: 2007Q2

REPORT INFORMATION
  Report Type: 
  Country: None (occurrence: None)
  Receive Date: 20070622
  Receipt Date: 20070202
  Transmission Date: 20071010
  Serious: No
  Sender: FDA-Public Use
  Company Number: US-ASTRAZENECA-2007UW00335

PATIENT
  Age: 31 Year
  Sex: Female

DRUGS (6)
  1. RHINOCORT [Suspect]
     Indication: RHINITIS ALLERGIC
     Dosage: 2 SPRAYS PER NOSTRIL QD
     Route: 045
     Dates: start: 20061203, end: 20061214
  2. ZYRTEC [Concomitant]
     Dates: start: 20060801
  3. AMMONIUM LACTATE [Concomitant]
  4. KETOCONAZOLE [Concomitant]
  5. MULTI-VITAMIN [Concomitant]
  6. IMIPRAMINE [Concomitant]
     Indication: PROPHYLAXIS
     Dates: start: 20060301

REACTIONS (1)
  - DERMATITIS CONTACT [None]
